FAERS Safety Report 13410610 (Version 1)
Quarter: 2017Q2

REPORT INFORMATION
  Report Type: Spontaneous
  Country: US (occurrence: US)
  Receive Date: 20170406
  Receipt Date: 20170406
  Transmission Date: 20170830
  Serious: Yes (Hospitalization)
  Sender: FDA-Public Use
  Company Number: US-ACORDA-ACO_135921_2017

PATIENT
  Age: 48 Year
  Sex: Male

DRUGS (3)
  1. AMPYRA [Suspect]
     Active Substance: DALFAMPRIDINE
     Indication: PRODUCT USED FOR UNKNOWN INDICATION
     Dosage: UNK
     Route: 065
  2. AVONEX [Suspect]
     Active Substance: INTERFERON BETA-1A
     Indication: MULTIPLE SCLEROSIS
     Dosage: UNK
     Route: 065
     Dates: start: 2005, end: 2012
  3. REBIF [Suspect]
     Active Substance: INTERFERON BETA-1A
     Indication: MULTIPLE SCLEROSIS
     Dosage: UNK
     Route: 065
     Dates: start: 2012, end: 2017

REACTIONS (8)
  - Disease progression [Unknown]
  - Muscular weakness [Unknown]
  - Gait disturbance [Unknown]
  - Condition aggravated [Unknown]
  - Central nervous system lesion [None]
  - Therapy cessation [Unknown]
  - Injection site cellulitis [Unknown]
  - Movement disorder [Unknown]

NARRATIVE: CASE EVENT DATE: 201612
